FAERS Safety Report 5420737-5 (Version None)
Quarter: 2007Q3

REPORT INFORMATION
  Report Type: 
  Country: None (occurrence: None)
  Receive Date: 20070816
  Receipt Date: 20070801
  Transmission Date: 20080115
  Serious: Yes (Death)
  Sender: FDA-Public Use
  Company Number: 013082

PATIENT
  Age: 74 Year
  Sex: Female

DRUGS (1)
  1. PRIALT [Suspect]
     Indication: DRUG USE FOR UNKNOWN INDICATION
     Dosage: 7 UG, INTRATHECAL
     Route: 037

REACTIONS (2)
  - CONFUSIONAL STATE [None]
  - NEOPLASM MALIGNANT [None]
